FAERS Safety Report 7097686-2 (Version None)
Quarter: 2010Q4

REPORT INFORMATION
  Report Type: 
  Country: None (occurrence: None)
  Receive Date: 20101112
  Receipt Date: 20101105
  Transmission Date: 20110411
  Serious: No
  Sender: FDA-Public Use
  Company Number: US-BIOGENIDEC-2010BI038611

PATIENT
  Age: 51 Year
  Sex: Female

DRUGS (6)
  1. AVONEX [Suspect]
     Indication: MULTIPLE SCLEROSIS
     Route: 030
     Dates: start: 20100114
  2. AVONEX [Suspect]
     Route: 030
     Dates: start: 20100121
  3. AVONEX [Suspect]
     Route: 030
     Dates: start: 20100128
  4. AVONEX [Suspect]
     Route: 030
     Dates: start: 20100204
  5. BLOOD THINNER (NOS) [Concomitant]
     Indication: PRODUCT USED FOR UNKNOWN INDICATION
  6. ASPIRIN [Concomitant]
     Indication: PRODUCT USED FOR UNKNOWN INDICATION
     Route: 048

REACTIONS (6)
  - DIARRHOEA [None]
  - DIZZINESS POSTURAL [None]
  - HEADACHE [None]
  - NAUSEA [None]
  - REGURGITATION [None]
  - RETCHING [None]
